FAERS Safety Report 23835464 (Version 1)
Quarter: 2024Q2

REPORT INFORMATION
  Report Type: Spontaneous
  Country: IN (occurrence: IN)
  Receive Date: 20240509
  Receipt Date: 20240509
  Transmission Date: 20240716
  Serious: No
  Sender: FDA-Public Use
  Company Number: IN-ALKEM LABORATORIES LIMITED-IN-ALKEM-2024-00448

PATIENT
  Age: 12 Year
  Sex: Male

DRUGS (3)
  1. AZATHIOPRINE [Suspect]
     Active Substance: AZATHIOPRINE
     Indication: Pemphigus
     Dosage: UNK, OD (50) ONCE A DAY
     Route: 065
  2. DEXAMETHASONE [Suspect]
     Active Substance: DEXAMETHASONE
     Indication: Pemphigus
     Dosage: 1 CUBIC CENTIMETER, BID
     Route: 042
  3. DEXAMETHASONE [Suspect]
     Active Substance: DEXAMETHASONE
     Dosage: UNK (TAPERED DOSE)
     Route: 042

REACTIONS (7)
  - Cushingoid [Unknown]
  - Hypertension [Unknown]
  - Weight increased [Unknown]
  - Skin lesion [Unknown]
  - Atrophy [Unknown]
  - Tachycardia [Unknown]
  - Chest pain [Unknown]
